FAERS Safety Report 18600305 (Version 1)
Quarter: 2020Q4

REPORT INFORMATION
  Report Type: Spontaneous
  Country: US (occurrence: US)
  Receive Date: 20201210
  Receipt Date: 20201210
  Transmission Date: 20210114
  Serious: Yes (Other)
  Sender: FDA-Public Use
  Company Number: None

PATIENT
  Age: 57 Year
  Sex: Female
  Weight: 77.4 kg

DRUGS (6)
  1. ESTRADIOL 1MG [Suspect]
     Active Substance: ESTRADIOL
     Indication: HORMONE REPLACEMENT THERAPY
     Dosage: ?          QUANTITY:135 TABLET(S);?
     Route: 048
     Dates: start: 20201105, end: 20201202
  2. FLAX [Concomitant]
  3. FISH OIL [Concomitant]
     Active Substance: FISH OIL
  4. VITAMIN D [Concomitant]
     Active Substance: VITAMIN D NOS
  5. OCCUVITE [Concomitant]
  6. MULTIVITAMIN [Concomitant]
     Active Substance: VITAMINS

REACTIONS (7)
  - Middle insomnia [None]
  - Flushing [None]
  - Feeling hot [None]
  - Product quality issue [None]
  - Manufacturing issue [None]
  - Insomnia [None]
  - Hyperhidrosis [None]

NARRATIVE: CASE EVENT DATE: 20201105
